FAERS Safety Report 22085500 (Version 3)
Quarter: 2023Q2

REPORT INFORMATION
  Report Type: Spontaneous
  Country: US (occurrence: US)
  Receive Date: 20230310
  Receipt Date: 20230509
  Transmission Date: 20230722
  Serious: No
  Sender: FDA-Public Use
  Company Number: US-KARYOPHARM-2023KPT000373

PATIENT

DRUGS (21)
  1. XPOVIO [Suspect]
     Active Substance: SELINEXOR
     Indication: Plasma cell myeloma
     Dosage: 80 MG, EVERY OTHER WEEK
     Route: 048
     Dates: start: 20230112
  2. XPOVIO [Suspect]
     Active Substance: SELINEXOR
     Dosage: 40 MG, EVERY OTHER WEEK
     Route: 048
     Dates: end: 2023
  3. XPOVIO [Suspect]
     Active Substance: SELINEXOR
     Dosage: 60 MG, 1X/2 WEEKS
     Route: 048
     Dates: start: 2023
  4. ALPRAZOLAM [Concomitant]
     Active Substance: ALPRAZOLAM
  5. ACYCLOVIR [Concomitant]
     Active Substance: ACYCLOVIR
  6. ATROVENT HFA [Concomitant]
     Active Substance: IPRATROPIUM BROMIDE
  7. BACLOFEN [Concomitant]
     Active Substance: BACLOFEN
  8. CYMBALTA [Concomitant]
     Active Substance: DULOXETINE HYDROCHLORIDE
  9. DEXAMETHASONE [Concomitant]
     Active Substance: DEXAMETHASONE
  10. GABAPENTIN [Concomitant]
     Active Substance: GABAPENTIN
  11. GRANIX [Concomitant]
     Active Substance: TBO-FILGRASTIM
  12. KLOR-CON [Concomitant]
     Active Substance: POTASSIUM CHLORIDE
  13. LANTUS [Concomitant]
     Active Substance: INSULIN GLARGINE
  14. LIDOCAINE\PRILOCAINE [Concomitant]
     Active Substance: LIDOCAINE\PRILOCAINE
  15. MEPRON [Concomitant]
     Active Substance: ATOVAQUONE
  16. METFORMIN [Concomitant]
     Active Substance: METFORMIN HYDROCHLORIDE
  17. NEUPOGEN [Concomitant]
     Active Substance: FILGRASTIM
  18. OLANZAPINE [Concomitant]
     Active Substance: OLANZAPINE
  19. ONDANSETRON [Concomitant]
     Active Substance: ONDANSETRON
  20. TRAMADOL [Concomitant]
     Active Substance: TRAMADOL
  21. PRILOSEC [Concomitant]
     Active Substance: OMEPRAZOLE MAGNESIUM

REACTIONS (9)
  - Wheezing [Unknown]
  - Nasopharyngitis [Unknown]
  - Taste disorder [Unknown]
  - Haematemesis [Recovered/Resolved]
  - Haemoptysis [Unknown]
  - Nausea [Not Recovered/Not Resolved]
  - Vomiting [Not Recovered/Not Resolved]
  - Dyspnoea [Unknown]
  - Diarrhoea [Unknown]

NARRATIVE: CASE EVENT DATE: 20230101
